FAERS Safety Report 5498209-1 (Version None)
Quarter: 2007Q4

REPORT INFORMATION
  Report Type: 
  Country: None (occurrence: None)
  Receive Date: 20071025
  Receipt Date: 20070412
  Transmission Date: 20080405
  Serious: No
  Sender: FDA-Public Use
  Company Number: A0647000A

PATIENT
  Age: 78 Year
  Sex: Male

DRUGS (10)
  1. ADVAIR DISKUS 100/50 [Suspect]
     Indication: ASTHMA
     Dosage: 1PUFF PER DAY
     Route: 055
     Dates: start: 20030101, end: 20070411
  2. LASIX [Concomitant]
  3. COZAAR [Concomitant]
  4. METOPROLOL TARTRATE [Concomitant]
  5. ASTELIN [Concomitant]
  6. LIPITOR [Concomitant]
  7. HYTRIN [Concomitant]
  8. SINGULAIR [Concomitant]
  9. COLCHICINE [Concomitant]
  10. CARDIZEM [Concomitant]

REACTIONS (2)
  - ORAL PAIN [None]
  - STOMATITIS [None]
